FAERS Safety Report 5853893-5 (Version None)
Quarter: 2008Q3

REPORT INFORMATION
  Report Type: 
  Country: None (occurrence: None)
  Receive Date: 20080822
  Receipt Date: 20080812
  Transmission Date: 20090109
  Serious: Yes (Other)
  Sender: FDA-Public Use
  Company Number: A0742200A

PATIENT
  Age: 45 Year
  Sex: Male

DRUGS (2)
  1. COMBIVIR [Suspect]
     Dosage: 1TAB SIX TIMES PER DAY
     Route: 048
     Dates: start: 20080707, end: 20080713
  2. NO CONCURRENT MEDICATION [Concomitant]

REACTIONS (15)
  - BLOOD CHOLESTEROL INCREASED [None]
  - CONTUSION [None]
  - DEHYDRATION [None]
  - HEADACHE [None]
  - HEART RATE INCREASED [None]
  - HEPATIC STEATOSIS [None]
  - HYPERTENSION [None]
  - HYPOAESTHESIA [None]
  - MUSCLE SPASMS [None]
  - MYALGIA [None]
  - NAUSEA [None]
  - PAIN [None]
  - PARAESTHESIA [None]
  - RASH [None]
  - TONGUE DISCOLOURATION [None]
